FAERS Safety Report 23189278 (Version 1)
Quarter: 2023Q4

REPORT INFORMATION
  Report Type: Report from Study
  Country: US (occurrence: None)
  Receive Date: 20231115
  Receipt Date: 20231115
  Transmission Date: 20240110
  Serious: Yes (Hospitalization)
  Sender: FDA-Public Use
  Company Number: US-ROCHE-3456034

PATIENT
  Sex: Female
  Weight: 114.2 kg

DRUGS (2)
  1. ATEZOLIZUMAB [Suspect]
     Active Substance: ATEZOLIZUMAB
     Indication: Pancreatic carcinoma metastatic
     Dosage: DATE OF MOST RECENT DOSE: 09/OCT/2023
     Route: 065
     Dates: start: 20230918
  2. CABOZANTINIB [Suspect]
     Active Substance: CABOZANTINIB
     Indication: Pancreatic carcinoma metastatic
     Dosage: DATE OF MOST RECENT DOSE: 29/OCT/2023
     Route: 065
     Dates: start: 20230918

REACTIONS (1)
  - Hypertension [Not Recovered/Not Resolved]

NARRATIVE: CASE EVENT DATE: 20231109
